FAERS Safety Report 8596018-8 (Version None)
Quarter: 2012Q3

REPORT INFORMATION
  Report Type: 
  Country: None (occurrence: None)
  Receive Date: 20120815
  Receipt Date: 20120802
  Transmission Date: 20120928
  Serious: Yes (Hospitalization)
  Sender: FDA-Public Use
  Company Number: FR-ASTRAZENECA-2012SE55013

PATIENT
  Age: 35 Year
  Sex: Female

DRUGS (1)
  1. ZOLMITRIPTAN [Suspect]
     Indication: MIGRAINE
     Route: 048
     Dates: start: 20100101

REACTIONS (1)
  - INTENTIONAL DRUG MISUSE [None]
